FAERS Safety Report 5907212-6 (Version None)
Quarter: 2008Q3

REPORT INFORMATION
  Report Type: 
  Country: None (occurrence: None)
  Receive Date: 20080929
  Receipt Date: 20080925
  Transmission Date: 20090109
  Serious: No
  Sender: FDA-Public Use
  Company Number: 004573

PATIENT
  Age: 46 Year
  Sex: Female

DRUGS (8)
  1. BUSULFEX [Suspect]
     Indication: STEM CELL TRANSPLANT
     Dosage: 12.8 MG/KG, QD, INTRAVENOUS
     Route: 042
     Dates: start: 20080622, end: 20080622
  2. MELPHALAN (MELPHALAN) [Concomitant]
  3. AZACTAM SWE (AZTROENAM) [Concomitant]
  4. FLAGYL [Concomitant]
  5. CANCIDAS [Concomitant]
  6. NOXAFIL [Concomitant]
  7. CIPROFLOXACIN HCL [Concomitant]
  8. TIENAM SWE (CILASTATIN, IMIPENEM) [Concomitant]

REACTIONS (2)
  - SKIN EXFOLIATION [None]
  - SKIN HYPERPIGMENTATION [None]
